FAERS Safety Report 15703205 (Version 3)
Quarter: 2018Q4

REPORT INFORMATION
  Report Type: Spontaneous
  Country: BE (occurrence: BR)
  Receive Date: 20181210
  Receipt Date: 20181230
  Transmission Date: 20190205
  Serious: Yes (Congenital Anomaly)
  Sender: FDA-Public Use
  Company Number: BE-JNJFOC-20181140612

PATIENT

DRUGS (1)
  1. PARACETAMOL [Suspect]
     Active Substance: ACETAMINOPHEN
     Indication: PRODUCT USED FOR UNKNOWN INDICATION
     Dosage: 500 MG, QID,EVERY 6 H, FOR MORE THAN 1 WEEK
     Route: 064

REACTIONS (4)
  - Tricuspid valve incompetence [Recovered/Resolved]
  - Foetal exposure during pregnancy [Unknown]
  - Right atrial enlargement [Recovered/Resolved]
  - Ductus arteriosus stenosis foetal [Recovered/Resolved]
